FAERS Safety Report 8280344-6 (Version None)
Quarter: 2012Q2

REPORT INFORMATION
  Report Type: 
  Country: None (occurrence: None)
  Receive Date: 20120412
  Receipt Date: 20111024
  Transmission Date: 20120825
  Serious: No
  Sender: FDA-Public Use
  Company Number: US-ASTRAZENECA-2011SE64639

PATIENT
  Age: 70 Year
  Sex: Female

DRUGS (2)
  1. RHINOCORT [Concomitant]
  2. NEXIUM [Suspect]
     Route: 048

REACTIONS (2)
  - ABDOMINAL DISCOMFORT [None]
  - IMPAIRED GASTRIC EMPTYING [None]
